FAERS Safety Report 7312401-2 (Version None)
Quarter: 2011Q1

REPORT INFORMATION
  Report Type: 
  Country: None (occurrence: None)
  Receive Date: 20110224
  Receipt Date: 20110207
  Transmission Date: 20110831
  Serious: Yes (Hospitalization)
  Sender: FDA-Public Use
  Company Number: US-BAYER-201038178NA

PATIENT
  Sex: Female
  Weight: 76 kg

DRUGS (6)
  1. YAZ [Suspect]
     Indication: CONTRACEPTION
     Route: 048
     Dates: start: 20070101, end: 20091101
  2. YAZ [Suspect]
     Indication: PREMENSTRUAL SYNDROME
  3. ALEVE [Concomitant]
     Dates: start: 19990101, end: 20100101
  4. YASMIN [Suspect]
     Indication: PRODUCT USED FOR UNKNOWN INDICATION
     Dosage: UNK
     Route: 048
     Dates: start: 20070601
  5. OCELLA [Suspect]
     Indication: PRODUCT USED FOR UNKNOWN INDICATION
     Route: 048
  6. ADVIL LIQUI-GELS [Concomitant]
     Dates: start: 19990101, end: 20100101

REACTIONS (11)
  - FEAR OF DEATH [None]
  - NAUSEA [None]
  - DIARRHOEA [None]
  - CHOLECYSTECTOMY [None]
  - VOMITING [None]
  - CHEST PAIN [None]
  - EMOTIONAL DISTRESS [None]
  - DEPRESSION [None]
  - NERVOUSNESS [None]
  - ABDOMINAL PAIN UPPER [None]
  - ABDOMINAL DISTENSION [None]
